FAERS Safety Report 5225566-3 (Version None)
Quarter: 2007Q1

REPORT INFORMATION
  Report Type: 
  Country: None (occurrence: None)
  Receive Date: 20061201
  Receipt Date: 20060829
  Transmission Date: 20070707
  Serious: Yes (Other)
  Sender: FDA-Public Use
  Company Number: US200606002258

PATIENT
  Age: 45 Year
  Sex: Male

DRUGS (3)
  1. CYMBALTA [Suspect]
     Dosage: SEE IMAGE
     Dates: start: 20051001
  2. CYMBALTA [Suspect]
     Dosage: SEE IMAGE
     Dates: start: 20051001
  3. ULTRAM [Concomitant]

REACTIONS (1)
  - CONVULSION [None]
